FAERS Safety Report 9241622 (Version 1)
Quarter: 2013Q2

REPORT INFORMATION
  Report Type: Spontaneous
  Country: US (occurrence: US)
  Receive Date: 20130419
  Receipt Date: 20130419
  Transmission Date: 20140414
  Serious: No
  Sender: FDA-Public Use
  Company Number: US-BAYER-2013-045103

PATIENT
  Age: 50 Year
  Sex: Female

DRUGS (1)
  1. BEYAZ [Suspect]
     Indication: MENSTRUAL CYCLE MANAGEMENT
     Dosage: ONE TABLET DAILY
     Route: 048
     Dates: start: 201302

REACTIONS (1)
  - Skin discolouration [None]
